FAERS Safety Report 6965846-4 (Version None)
Quarter: 2010Q3

REPORT INFORMATION
  Report Type: 
  Country: None (occurrence: None)
  Receive Date: 20100903
  Receipt Date: 20100823
  Transmission Date: 20110219
  Serious: Yes (Life-Threatening, Hospitalization)
  Sender: FDA-Public Use
  Company Number: DE-GENENTECH-305880

PATIENT
  Age: 70 Year
  Sex: Female

DRUGS (1)
  1. RITUXIMAB [Suspect]
     Indication: RHEUMATOID ARTHRITIS
     Dosage: UNK
     Route: 042

REACTIONS (1)
  - PULMONARY EMBOLISM [None]
